FAERS Safety Report 7093502-3 (Version None)
Quarter: 2010Q4

REPORT INFORMATION
  Report Type: 
  Country: None (occurrence: None)
  Receive Date: 20101110
  Receipt Date: 20090706
  Transmission Date: 20110411
  Serious: No
  Sender: FDA-Public Use
  Company Number: US-KINGPHARMUSA00001-K200900822

PATIENT

DRUGS (1)
  1. THROMBIN-JMI [Suspect]
     Indication: OPERATIVE HAEMORRHAGE
     Dosage: UNK, SINGLE
     Route: 061
     Dates: start: 20090101, end: 20090101

REACTIONS (2)
  - ADVERSE REACTION [None]
  - INFLAMMATION [None]
